APPROVED DRUG PRODUCT: ACETIC ACID 2% IN AQUEOUS ALUMINUM ACETATE
Active Ingredient: ACETIC ACID, GLACIAL; ALUMINUM ACETATE
Strength: 2%;0.79%
Dosage Form/Route: SOLUTION/DROPS;OTIC
Application: A040063 | Product #001
Applicant: BAUSCH AND LOMB PHARMACEUTICALS INC
Approved: Feb 25, 1994 | RLD: No | RS: No | Type: DISCN